FAERS Safety Report 11075065 (Version 1)
Quarter: 2015Q2

REPORT INFORMATION
  Report Type: Spontaneous
  Country: US (occurrence: None)
  Receive Date: 20150428
  Receipt Date: 20150428
  Transmission Date: 20150821
  Serious: Yes (Other)
  Sender: FDA-Public Use
  Company Number: None

PATIENT
  Age: 1 Month
  Sex: Female
  Weight: 58.97 kg

DRUGS (3)
  1. LEVOTHROID [Concomitant]
     Active Substance: LEVOTHYROXINE SODIUM
  2. BIOTINE [Concomitant]
     Active Substance: LACTOPEROXIDASE BOVINE\LYSOZYME HYDROCHLORIDE
  3. LATISSE [Suspect]
     Active Substance: BIMATOPROST
     Indication: GROWTH OF EYELASHES
     Dosage: 1DROP AT BEDTIME TOPICAL TO UPPER LASH LINE
     Route: 061

REACTIONS (2)
  - Skin mass [None]
  - Scar [None]

NARRATIVE: CASE EVENT DATE: 20150421
